FAERS Safety Report 10432403 (Version 3)
Quarter: 2020Q3

REPORT INFORMATION
  Report Type: Spontaneous
  Country: NL (occurrence: NL)
  Receive Date: 20140905
  Receipt Date: 20200806
  Transmission Date: 20201102
  Serious: Yes (Other)
  Sender: FDA-Public Use
  Company Number: NL-RANBAXY-2014R1-78440

PATIENT
  Age: 82 Year
  Sex: Male

DRUGS (1)
  1. AMOXICILLIN/CLAVULANATE [Suspect]
     Active Substance: AMOXICILLIN\CLAVULANATE POTASSIUM
     Indication: ANTIBIOTIC THERAPY
     Route: 042

REACTIONS (10)
  - Electrocardiogram change [Recovered/Resolved]
  - Kounis syndrome [Recovering/Resolving]
  - Electrocardiogram ST segment elevation [Recovering/Resolving]
  - Drug hypersensitivity [Recovering/Resolving]
  - Cardio-respiratory arrest [Recovered/Resolved]
  - Electrocardiogram ST segment elevation [Unknown]
  - Acute myocardial infarction [Recovering/Resolving]
  - Arteriospasm coronary [Recovering/Resolving]
  - Rash erythematous [Unknown]
  - Rash erythematous [Recovering/Resolving]
